FAERS Safety Report 8075467-0 (Version None)
Quarter: 2012Q1

REPORT INFORMATION
  Report Type: 
  Country: None (occurrence: None)
  Receive Date: 20120127
  Receipt Date: 20120117
  Transmission Date: 20120608
  Serious: Yes (Other)
  Sender: FDA-Public Use
  Company Number: AU-UCBSA-035984

PATIENT
  Sex: Female
  Weight: 75 kg

DRUGS (2)
  1. KEPPRA [Suspect]
     Indication: EPILEPSY
  2. DILANTIN [Suspect]
     Indication: EPILEPSY
     Route: 048

REACTIONS (4)
  - RASH [None]
  - MUCOSAL INFLAMMATION [None]
  - CONJUNCTIVAL IRRITATION [None]
  - VISUAL IMPAIRMENT [None]
